FAERS Safety Report 10385990 (Version 1)
Quarter: 2014Q1

REPORT INFORMATION
  Report Type: Spontaneous
  Country: US (occurrence: None)
  Receive Date: 20140306
  Receipt Date: 20140306
  Transmission Date: 20141002
  Serious: Yes (Hospitalization)
  Sender: FDA-Public Use
  Company Number: 163-21880-13060561

PATIENT
  Age: 69 Year
  Sex: Female

DRUGS (8)
  1. REVLIMID (LENALIDOMIDE) (25 MILLIGRAM, CAPSULES) [Suspect]
     Indication: PLASMA CELL MYELOMA
     Dosage: 25 MG, 21 IN 28 D, PO
     Route: 048
     Dates: start: 20130527
  2. VELCADE (BORTEZOMIB) [Concomitant]
  3. CYTOXAN (CYCLOPHOSPHAMIDE) [Concomitant]
  4. DEXAMETHASONE (DEXAMETHASONE) [Suspect]
  5. HYDROCHLOROTHIAZIDE (HYDROCHLOROTHIAZIDE) [Concomitant]
  6. PHENERGAN (PROMETHAZINE) [Concomitant]
  7. LASIX (FUROSEMIDE) [Concomitant]
  8. POTASSIUM (POTASSIUM) [Concomitant]

REACTIONS (4)
  - Influenza [None]
  - Diarrhoea [None]
  - Anosmia [None]
  - Ageusia [None]
